FAERS Safety Report 20213983 (Version 1)
Quarter: 2021Q4

REPORT INFORMATION
  Report Type: Spontaneous
  Country: CN (occurrence: CN)
  Receive Date: 20211221
  Receipt Date: 20211221
  Transmission Date: 20220303
  Serious: Yes (Other)
  Sender: FDA-Public Use
  Company Number: CN-PFIZER INC-202101760701

PATIENT
  Age: 83 Year
  Sex: Female

DRUGS (2)
  1. MEDROL [Suspect]
     Active Substance: METHYLPREDNISOLONE
     Indication: Bronchiectasis
     Dosage: 4 MG, 1X/DAY
     Route: 048
     Dates: start: 20210517, end: 20210613
  2. MEDROL [Suspect]
     Active Substance: METHYLPREDNISOLONE
     Indication: Infection

REACTIONS (2)
  - Hypokalaemia [Recovering/Resolving]
  - Off label use [Unknown]

NARRATIVE: CASE EVENT DATE: 20210518
